FAERS Safety Report 15292973 (Version 3)
Quarter: 2018Q4

REPORT INFORMATION
  Report Type: Report from Study
  Country: US (occurrence: US)
  Receive Date: 20180819
  Receipt Date: 20181203
  Transmission Date: 20190204
  Serious: No
  Sender: FDA-Public Use
  Company Number: PHEH2018US034177

PATIENT
  Sex: Female

DRUGS (1)
  1. GILENYA [Suspect]
     Active Substance: FINGOLIMOD HYDROCHLORIDE
     Indication: MULTIPLE SCLEROSIS
     Dosage: 0.5 MG, QD
     Route: 048
     Dates: start: 20180731

REACTIONS (7)
  - Hypoaesthesia [Not Recovered/Not Resolved]
  - Ear disorder [Not Recovered/Not Resolved]
  - Bladder disorder [Recovering/Resolving]
  - Hypoacusis [Not Recovered/Not Resolved]
  - Arthropathy [Not Recovered/Not Resolved]
  - Pain [Recovering/Resolving]
  - Fungal infection [Recovering/Resolving]
